FAERS Safety Report 7913615 (Version 6)
Quarter: 2012Q4

REPORT INFORMATION
  Report Type: Report from Study
  Country: FR (occurrence: FR)
  Receive Date: 20110425
  Receipt Date: 20120905
  Transmission Date: 20130627
  Serious: Yes (Life-Threatening, Hospitalization)
  Sender: FDA-Public Use
  Company Number: PHHY2011FR33127

PATIENT
  Age: 56 Year
  Sex: Male
  Weight: 92 kg

DRUGS (14)
  1. EVEROLIMUS [Suspect]
     Indication: RENAL CANCER
     Dosage: 10 mg, daily
     Route: 048
     Dates: start: 20110104, end: 20110419
  2. LANTUS [Concomitant]
     Dosage: 22 IU, QID
     Dates: start: 2008
  3. LEVOTHYROX [Concomitant]
     Dosage: 100 mg, QD
  4. CREON [Concomitant]
  5. HYDROCORTISONE [Concomitant]
     Dosage: 20 mg, daily
  6. FLUDROCORTISONE [Concomitant]
     Dosage: 50 mg, QD
  7. NOVONORM [Concomitant]
     Dosage: 4 mg, TID
  8. ACTOS [Concomitant]
     Dosage: 30 mg, QD
  9. TAREG [Concomitant]
     Dosage: 160 mg, QD
  10. LIPANTHYL [Concomitant]
     Dosage: 145 mg, QD
  11. ESOMEPRAZOLE [Concomitant]
     Dosage: 20 mg, QD
  12. LEXOMIL [Concomitant]
     Dosage: 0.5 DF, QD
  13. XANAX [Concomitant]
     Dosage: 0.5 DF, BID
  14. ARANESP [Concomitant]

REACTIONS (17)
  - Septic shock [Recovered/Resolved with Sequelae]
  - Staphylococcal infection [Recovered/Resolved with Sequelae]
  - Alpha haemolytic streptococcal infection [Recovered/Resolved with Sequelae]
  - Asthenia [Recovered/Resolved with Sequelae]
  - Oedema [Recovered/Resolved with Sequelae]
  - Lung disorder [Unknown]
  - Adrenal insufficiency [Unknown]
  - Haemodynamic instability [Unknown]
  - Glomerular filtration rate decreased [Recovered/Resolved with Sequelae]
  - Hyperglycaemia [Unknown]
  - Glycosylated haemoglobin increased [Recovered/Resolved with Sequelae]
  - Hypocalcaemia [Recovered/Resolved with Sequelae]
  - Bone pain [Recovered/Resolved with Sequelae]
  - Haemoglobin decreased [Recovered/Resolved with Sequelae]
  - Blood lactate dehydrogenase increased [Recovered/Resolved with Sequelae]
  - Blood phosphorus decreased [Recovered/Resolved with Sequelae]
  - Hypokalaemia [Recovered/Resolved with Sequelae]
